FAERS Safety Report 13543478 (Version 1)
Quarter: 2017Q2

REPORT INFORMATION
  Report Type: Report from Study
  Country: None (occurrence: AU)
  Receive Date: 20170515
  Receipt Date: 20170515
  Transmission Date: 20170830
  Serious: Yes (Hospitalization)
  Sender: FDA-Public Use
  Company Number: AU-ABBVIE-17K-008-1970078-00

PATIENT
  Sex: Male

DRUGS (1)
  1. DUODOPA [Suspect]
     Active Substance: CARBIDOPA\LEVODOPA
     Indication: PARKINSON^S DISEASE
     Dosage: 16HRLY INFUSION
     Route: 050
     Dates: start: 20160307

REACTIONS (4)
  - Tendon rupture [Unknown]
  - Arthralgia [Unknown]
  - Pain in extremity [Unknown]
  - Medical device removal [Unknown]
